FAERS Safety Report 24456540 (Version 2)
Quarter: 2024Q4

REPORT INFORMATION
  Report Type: Report from Study
  Country: US (occurrence: US)
  Receive Date: 20241017
  Receipt Date: 20241018
  Transmission Date: 20250115
  Serious: No
  Sender: ROCHE
  Company Number: US-ROCHE-3504083

PATIENT
  Age: 49 Year
  Sex: Female

DRUGS (6)
  1. RITUXAN [Suspect]
     Active Substance: RITUXIMAB
     Indication: Multiple sclerosis
     Route: 042
  2. ACTEMRA [Suspect]
     Active Substance: TOCILIZUMAB
     Indication: Multiple sclerosis
     Dosage: EVERY SATURDAY, DOSE DESCRIBED AS 0.9 ML
     Route: 058
     Dates: start: 20220701
  3. ACTEMRA [Suspect]
     Active Substance: TOCILIZUMAB
     Indication: Neuromyelitis optica spectrum disorder
     Route: 058
     Dates: start: 20240201
  4. ACTEMRA [Suspect]
     Active Substance: TOCILIZUMAB
     Indication: Myelitis
  5. ACTEMRA [Suspect]
     Active Substance: TOCILIZUMAB
     Indication: Demyelination
  6. PREDNISONE [Concomitant]
     Active Substance: PREDNISONE

REACTIONS (2)
  - Gait disturbance [Recovered/Resolved]
  - Off label use [Unknown]
